FAERS Safety Report 7431133-3 (Version None)
Quarter: 2011Q2

REPORT INFORMATION
  Report Type: 
  Country: None (occurrence: None)
  Receive Date: 20110421
  Receipt Date: 20110411
  Transmission Date: 20111010
  Serious: Yes (Death, Life-Threatening, Other)
  Sender: FDA-Public Use
  Company Number: FR-BAXTER-2011BH011770

PATIENT
  Sex: Male

DRUGS (7)
  1. HOLOXAN BAXTER [Suspect]
     Indication: DRUG EXPOSURE DURING PREGNANCY
     Route: 064
     Dates: start: 20061201, end: 20070101
  2. DOXORUBICIN GENERIC [Suspect]
     Indication: DRUG EXPOSURE DURING PREGNANCY
     Route: 064
     Dates: start: 20061201, end: 20070101
  3. SOLU-MEDROL [Concomitant]
     Indication: DRUG EXPOSURE DURING PREGNANCY
     Route: 064
     Dates: start: 20061201
  4. NEULASTA [Concomitant]
     Indication: DRUG EXPOSURE DURING PREGNANCY
     Route: 064
     Dates: start: 20061201
  5. ZOPHREN [Concomitant]
     Indication: DRUG EXPOSURE DURING PREGNANCY
     Route: 064
     Dates: start: 20061201
  6. CISPLATIN [Suspect]
     Indication: DRUG EXPOSURE DURING PREGNANCY
     Route: 064
     Dates: start: 20061201, end: 20061201
  7. UROMITEXAN [Concomitant]
     Indication: DRUG EXPOSURE DURING PREGNANCY
     Route: 064
     Dates: start: 20061201

REACTIONS (9)
  - RENAL FAILURE [None]
  - THROMBOCYTOPENIA [None]
  - CARDIAC FAILURE [None]
  - OLIGOHYDRAMNIOS [None]
  - NEUTROPENIA [None]
  - FOETAL GROWTH RESTRICTION [None]
  - LEFT VENTRICULAR FAILURE [None]
  - DRUG EXPOSURE DURING PREGNANCY [None]
  - ANAEMIA [None]
